FAERS Safety Report 7954611-7 (Version None)
Quarter: 2011Q4

REPORT INFORMATION
  Report Type: 
  Country: None (occurrence: None)
  Receive Date: 20111202
  Receipt Date: 20111125
  Transmission Date: 20120403
  Serious: Yes (Other)
  Sender: FDA-Public Use
  Company Number: PHHY2011FR104174

PATIENT
  Age: 73 Year
  Sex: Female
  Weight: 72 kg

DRUGS (10)
  1. ZOLEDRONOC ACID [Suspect]
     Indication: OSTEOPOROSIS
     Dosage: UNK UKN, UNK
     Route: 042
     Dates: start: 20110913
  2. ACETAMINOPHEN AND TRAMADOL HCL [Concomitant]
     Indication: LUMBAR VERTEBRAL FRACTURE
  3. ACETAMINOPHEN AND TRAMADOL HCL [Concomitant]
     Indication: EXOSTOSIS
  4. ACETAMINOPHEN AND TRAMADOL HCL [Concomitant]
     Indication: PAIN
     Dosage: UNK UKN, UNK
  5. VERAPAMIL LP [Concomitant]
     Indication: CARDIAC FAILURE
     Dosage: 240 MG, UNK
     Dates: start: 19870101
  6. SULFARLEM [Concomitant]
     Indication: DRY MOUTH
     Dosage: 25 MG, UNK
  7. XALATAN [Concomitant]
     Indication: INTRAOCULAR PRESSURE INCREASED
     Dosage: UNK UKN, UNK
  8. LEVOTHYROXINE SODIUM [Concomitant]
     Dosage: 125 UG, UNK
     Route: 042
     Dates: start: 19900101
  9. ESIDRIX [Concomitant]
     Indication: CARDIAC FAILURE
     Dosage: 25 MG, UNK
     Dates: start: 19890101
  10. SULFARLEM [Concomitant]
     Indication: DRY EYE

REACTIONS (2)
  - FUNGAL INFECTION [None]
  - TOOTH DISORDER [None]
